FAERS Safety Report 6794167-8 (Version None)
Quarter: 2010Q2

REPORT INFORMATION
  Report Type: 
  Country: None (occurrence: None)
  Receive Date: 20100624
  Receipt Date: 20080402
  Transmission Date: 20101027
  Serious: No
  Sender: FDA-Public Use
  Company Number: US-PFIZER INC-ENC200800068

PATIENT
  Sex: Male

DRUGS (20)
  1. ARGATROBAN [Suspect]
     Indication: HEPARIN-INDUCED THROMBOCYTOPENIA
     Dosage: 1 MCG/KG/MIN,FREQUENCY:  UNK
     Route: 042
     Dates: start: 20080324, end: 20080325
  2. ARGATROBAN [Suspect]
     Dosage: 0.7 MCG/KG/MIN
     Route: 042
     Dates: start: 20080325, end: 20080326
  3. ARGATROBAN [Suspect]
     Dosage: 1.25 MCG/KG/MIN
     Route: 042
     Dates: start: 20080326, end: 20080328
  4. ARGATROBAN [Suspect]
     Dosage: 0.7 MCG/KG/MIN,FREQUENCY:  UNK
     Route: 042
     Dates: start: 20080328, end: 20080329
  5. ARGATROBAN [Suspect]
     Dosage: 1 MCG/KG/MIN
     Route: 042
     Dates: start: 20080329, end: 20080330
  6. ARGATROBAN [Suspect]
     Dosage: 0.5 MCG/KG/MIN
     Route: 042
     Dates: start: 20080330, end: 20080330
  7. ARGATROBAN [Suspect]
     Dosage: 0.75 MCG/KG/MIN,FREQUENCY:  UNK
     Route: 042
     Dates: start: 20080330, end: 20080331
  8. ARGATROBAN [Suspect]
     Dosage: 1 MCG/KG/MIN
     Route: 042
     Dates: start: 20080331, end: 20080331
  9. ARGATROBAN [Suspect]
     Dosage: 0.75 MCG/KG/MIN
     Route: 042
     Dates: start: 20080331, end: 20080401
  10. ALPRAZOLAM [Concomitant]
  11. CALCIUM ACETATE [Concomitant]
  12. PHENYTOIN [Concomitant]
  13. LISINOPRIL [Concomitant]
  14. CLONIDINE [Concomitant]
  15. LAMOTRIGINE [Concomitant]
  16. DILTIAZEM [Concomitant]
  17. CINACALCET HYDROCHLORIDE [Concomitant]
  18. EZETIMIBE/SIMVASTATIN [Concomitant]
  19. WARFARIN SODIUM [Concomitant]
  20. NIFEDIPINE [Concomitant]

REACTIONS (1)
  - ACTIVATED PARTIAL THROMBOPLASTIN TIME ABNORMAL [None]
